FAERS Safety Report 16480490 (Version 1)
Quarter: 2019Q2

REPORT INFORMATION
  Report Type: Spontaneous
  Country: GR (occurrence: GR)
  Receive Date: 20190626
  Receipt Date: 20190626
  Transmission Date: 20190711
  Serious: Yes (Other)
  Sender: FDA-Public Use
  Company Number: GR-GALDERMA-GR19033264

PATIENT
  Age: 33 Year
  Sex: Female

DRUGS (2)
  1. CIPROFLOXACIN. [Concomitant]
     Active Substance: CIPROFLOXACIN
     Indication: ENDOMETRITIS
     Dosage: 200MG/100ML
     Route: 042
  2. DOXYCYCLINE. [Suspect]
     Active Substance: DOXYCYCLINE
     Indication: ENDOMETRITIS
     Dosage: UNKNOWN
     Route: 048

REACTIONS (2)
  - Drug ineffective for unapproved indication [Unknown]
  - Intentional product use issue [Recovered/Resolved]
